FAERS Safety Report 15578690 (Version 4)
Quarter: 2019Q1

REPORT INFORMATION
  Report Type: Spontaneous
  Country: US (occurrence: US)
  Receive Date: 20181102
  Receipt Date: 20190306
  Transmission Date: 20190417
  Serious: No
  Sender: FDA-Public Use
  Company Number: PHEH2018US046762

PATIENT
  Sex: Female

DRUGS (3)
  1. ZOFRAN ODT [Suspect]
     Active Substance: ONDANSETRON HYDROCHLORIDE
     Indication: PRODUCT USED FOR UNKNOWN INDICATION
     Route: 048
  2. ZOFRAN [Suspect]
     Active Substance: ONDANSETRON HYDROCHLORIDE
     Indication: MORNING SICKNESS
     Dosage: 4 MG, Q6H, PRN
     Route: 042
     Dates: start: 20110722, end: 20110804
  3. ONDANSETRON. [Suspect]
     Active Substance: ONDANSETRON
     Indication: MORNING SICKNESS
     Dosage: 4 MG, Q6H, PRN
     Route: 048
     Dates: start: 20110804, end: 20120310

REACTIONS (8)
  - Perineal injury [Unknown]
  - Maternal exposure during pregnancy [Unknown]
  - Cystitis [Unknown]
  - Fatigue [Unknown]
  - Vision blurred [Unknown]
  - Emotional distress [Unknown]
  - Hypothyroidism [Unknown]
  - Product use in unapproved indication [Unknown]
